FAERS Safety Report 23593561 (Version 1)
Quarter: 2024Q1

REPORT INFORMATION
  Report Type: Spontaneous
  Country: US (occurrence: US)
  Receive Date: 20240304
  Receipt Date: 20240304
  Transmission Date: 20240410
  Serious: No
  Sender: FDA-Public Use
  Company Number: US-BIOMARINAP-US-2024-156158

PATIENT

DRUGS (11)
  1. PALYNZIQ [Suspect]
     Active Substance: PEGVALIASE-PQPZ
     Indication: Phenylketonuria
     Dosage: 30 MILLIGRAM, QD
     Route: 058
  2. KUVAN [Suspect]
     Active Substance: SAPROPTERIN DIHYDROCHLORIDE
     Indication: Phenylketonuria
     Route: 065
  3. FAMOTIDINE [Concomitant]
     Active Substance: FAMOTIDINE
     Indication: Product used for unknown indication
     Dosage: 20 MILLIGRAM
  4. EZETIMIBE [Concomitant]
     Active Substance: EZETIMIBE
     Indication: Product used for unknown indication
     Dosage: 10 MILLIGRAM
  5. AUVI-Q [Concomitant]
     Active Substance: EPINEPHRINE
     Indication: Product used for unknown indication
  6. CHOLESTYRAMINE [Concomitant]
     Active Substance: CHOLESTYRAMINE
     Indication: Product used for unknown indication
     Dosage: 4 GRAM
  7. ZYRTEC [Concomitant]
     Active Substance: CETIRIZINE HYDROCHLORIDE
     Indication: Product used for unknown indication
     Dosage: 10 MILLIGRAM
  8. EPINEPHRINE [Concomitant]
     Active Substance: EPINEPHRINE
     Indication: Product used for unknown indication
  9. ZETIA [Concomitant]
     Active Substance: EZETIMIBE
     Indication: Product used for unknown indication
     Dosage: 10 MILLIGRAM
  10. LACTOBACILLUS ACIDOPHILUS [Concomitant]
     Active Substance: LACTOBACILLUS ACIDOPHILUS
     Indication: Product used for unknown indication
  11. VITAMINS [Concomitant]
     Active Substance: VITAMINS
     Indication: Product used for unknown indication

REACTIONS (1)
  - Treatment noncompliance [Unknown]
